FAERS Safety Report 22611541 (Version 1)
Quarter: 2023Q2

REPORT INFORMATION
  Report Type: Spontaneous
  Country: CZ (occurrence: CZ)
  Receive Date: 20230616
  Receipt Date: 20230616
  Transmission Date: 20230721
  Serious: Yes (Other)
  Sender: FDA-Public Use
  Company Number: CZ-FreseniusKabi-FK202308508

PATIENT
  Sex: Female

DRUGS (4)
  1. CARBOPLATIN [Suspect]
     Active Substance: CARBOPLATIN
     Indication: Endometrial cancer
     Dosage: THREE SERIES OF ADJUVANT CHEMOTHERAPY
     Dates: start: 20210108, end: 20210219
  2. PACLITAXEL [Suspect]
     Active Substance: PACLITAXEL
     Indication: Endometrial cancer
     Dosage: THREE SERIES OF ADJUVANT CHEMOTHERAPY
     Dates: start: 20210108, end: 20210219
  3. TIANEPTINE SODIUM [Concomitant]
     Active Substance: TIANEPTINE SODIUM
     Indication: Product used for unknown indication
  4. PLAQUENIL [Concomitant]
     Active Substance: HYDROXYCHLOROQUINE SULFATE
     Indication: Product used for unknown indication

REACTIONS (2)
  - Deep vein thrombosis [Unknown]
  - Pulmonary embolism [Unknown]
